FAERS Safety Report 12492839 (Version 2)
Quarter: 2017Q3

REPORT INFORMATION
  Report Type: Spontaneous
  Country: US (occurrence: US)
  Receive Date: 20160623
  Receipt Date: 20170711
  Transmission Date: 20171127
  Serious: No
  Sender: FDA-Public Use
  Company Number: US-PFIZER INC-2016285898

PATIENT
  Sex: Female

DRUGS (16)
  1. CELEBREX [Suspect]
     Active Substance: CELECOXIB
     Dosage: UNK
  2. ERYTHROMYCIN. [Suspect]
     Active Substance: ERYTHROMYCIN
     Dosage: UNK
  3. MACRODANTIN [Suspect]
     Active Substance: NITROFURANTOIN
     Dosage: UNK
  4. AZITHROMYCIN ANHYDROUS. [Suspect]
     Active Substance: AZITHROMYCIN ANHYDROUS
     Dosage: UNK
  5. BUSPAR [Suspect]
     Active Substance: BUSPIRONE HYDROCHLORIDE
     Dosage: UNK
  6. LEVAQUIN [Suspect]
     Active Substance: LEVOFLOXACIN
     Dosage: UNK
  7. MACROBID [Suspect]
     Active Substance: NITROFURANTOIN\NITROFURANTOIN MONOHYDRATE
     Dosage: UNK
  8. AMOXICILLIN. [Suspect]
     Active Substance: AMOXICILLIN
     Dosage: UNK
  9. FENTANYL CITRATE. [Suspect]
     Active Substance: FENTANYL CITRATE
     Dosage: UNK
  10. CODEINE [Suspect]
     Active Substance: CODEINE
     Dosage: UNK
  11. LEXAPRO [Suspect]
     Active Substance: ESCITALOPRAM OXALATE
     Dosage: UNK
  12. NORVASC [Suspect]
     Active Substance: AMLODIPINE BESYLATE
     Dosage: UNK
  13. LISINOPRIL. [Suspect]
     Active Substance: LISINOPRIL
     Dosage: UNK
  14. KENALOG [Suspect]
     Active Substance: TRIAMCINOLONE ACETONIDE
     Dosage: UNK
  15. DILAUDID [Suspect]
     Active Substance: HYDROMORPHONE HYDROCHLORIDE
     Dosage: UNK
  16. CATAPRES [Suspect]
     Active Substance: CLONIDINE HYDROCHLORIDE
     Dosage: UNK

REACTIONS (1)
  - Drug hypersensitivity [Unknown]
